FAERS Safety Report 7377009-1 (Version None)
Quarter: 2011Q1

REPORT INFORMATION
  Report Type: 
  Country: None (occurrence: None)
  Receive Date: 20110328
  Receipt Date: 20110315
  Transmission Date: 20110831
  Serious: No
  Sender: FDA-Public Use
  Company Number: US-BIOGENIDEC-2010BI024450

PATIENT
  Sex: Female

DRUGS (1)
  1. TYSABRI [Suspect]
     Indication: MULTIPLE SCLEROSIS
     Route: 042
     Dates: start: 20090826

REACTIONS (10)
  - HYPOAESTHESIA [None]
  - RESPIRATORY TRACT INFECTION [None]
  - DIZZINESS [None]
  - MUSCULAR WEAKNESS [None]
  - OEDEMA PERIPHERAL [None]
  - PNEUMONIA [None]
  - BALANCE DISORDER [None]
  - FATIGUE [None]
  - NAUSEA [None]
  - LUNG INFECTION [None]
